FAERS Safety Report 5745981-9 (Version None)
Quarter: 2008Q2

REPORT INFORMATION
  Report Type: 
  Country: None (occurrence: None)
  Receive Date: 20080520
  Receipt Date: 20080502
  Transmission Date: 20081010
  Serious: Yes (Hospitalization)
  Sender: FDA-Public Use
  Company Number: 2008AL003218

PATIENT
  Age: 72 Year
  Sex: Male
  Weight: 93.8946 kg

DRUGS (2)
  1. DIGOXIN [Suspect]
     Indication: CARDIAC FAILURE CONGESTIVE
     Dosage: 0.125 MG DAILY PO
     Route: 048
  2. LANOXIN [Concomitant]

REACTIONS (2)
  - ILL-DEFINED DISORDER [None]
  - MALAISE [None]
